FAERS Safety Report 9333364 (Version 2)
Quarter: 2013Q2

REPORT INFORMATION
  Report Type: Spontaneous
  Country: US (occurrence: None)
  Receive Date: 20130604
  Receipt Date: 20130628
  Transmission Date: 20140414
  Serious: Yes (Other)
  Sender: FDA-Public Use
  Company Number: AXC-2013-000238

PATIENT
  Age: 3 Year
  Sex: Male

DRUGS (7)
  1. ZENPEP [Suspect]
     Indication: CYSTIC FIBROSIS
     Dosage: 25000 USP
     Route: 048
     Dates: start: 2011
  2. ALBUTEROL  /00139501/ (SALBUTAMOL) [Concomitant]
  3. PULMOZYME (DORNASE ALFA) [Concomitant]
  4. HYPERTONIC SALINE SOLUTION (SODIUM CHLORIDE) [Concomitant]
  5. PREVACID (LANSOPRAZOLE) [Concomitant]
  6. ZYRTEC (CETIRIZINE HYDROCHLORIDE) [Concomitant]
  7. MIRALAX  /00754501/ (MACROGOL) [Concomitant]

REACTIONS (3)
  - Food allergy [None]
  - Anaphylactic reaction [None]
  - Urticaria [None]
